FAERS Safety Report 6865239-4 (Version None)
Quarter: 2010Q3

REPORT INFORMATION
  Report Type: 
  Country: None (occurrence: None)
  Receive Date: 20100721
  Receipt Date: 20080415
  Transmission Date: 20110219
  Serious: No
  Sender: FDA-Public Use
  Company Number: US-PFIZER INC-2008034668

PATIENT
  Sex: Female
  Weight: 61.2 kg

DRUGS (5)
  1. CHANTIX [Suspect]
     Indication: SMOKING CESSATION THERAPY
     Dates: start: 20080325, end: 20080406
  2. LYRICA [Concomitant]
     Indication: FIBROMYALGIA
     Dates: start: 20080101
  3. TEMAZEPAM [Concomitant]
     Indication: SLEEP DISORDER
  4. RESTORIL [Concomitant]
  5. VICODIN [Concomitant]

REACTIONS (16)
  - ABDOMINAL DISTENSION [None]
  - ABNORMAL DREAMS [None]
  - CONSTIPATION [None]
  - COUGH [None]
  - DISCOMFORT [None]
  - FATIGUE [None]
  - FLATULENCE [None]
  - HEADACHE [None]
  - INCREASED APPETITE [None]
  - INSOMNIA [None]
  - MALAISE [None]
  - NAUSEA [None]
  - RASH [None]
  - RASH MACULAR [None]
  - SNEEZING [None]
  - UNEVALUABLE EVENT [None]
